FAERS Safety Report 8448873-X (Version None)
Quarter: 2012Q2

REPORT INFORMATION
  Report Type: 
  Country: None (occurrence: None)
  Receive Date: 20120619
  Receipt Date: 20120614
  Transmission Date: 20120825
  Serious: Yes (Death)
  Sender: FDA-Public Use
  Company Number: US-GLAXOSMITHKLINE-A0845699A

PATIENT
  Age: 63 Year
  Sex: Male
  Weight: 167 kg

DRUGS (4)
  1. AVANDIA [Suspect]
     Indication: DIABETES MELLITUS
     Dosage: 8MG PER DAY
     Route: 048
     Dates: start: 20020101, end: 20070101
  2. PREDNISONE [Concomitant]
  3. GLYBURIDE [Concomitant]
  4. TERAZOSIN HCL [Concomitant]

REACTIONS (2)
  - SUDDEN DEATH [None]
  - CARDIO-RESPIRATORY ARREST [None]
